FAERS Safety Report 6129975-X (Version None)
Quarter: 2009Q1

REPORT INFORMATION
  Report Type: 
  Country: None (occurrence: None)
  Receive Date: 20090324
  Receipt Date: 20090319
  Transmission Date: 20090719
  Serious: Yes (Hospitalization)
  Sender: FDA-Public Use
  Company Number: GB-MERCK-0810GBR00132

PATIENT
  Age: 82 Year
  Sex: Male

DRUGS (8)
  1. JANUVIA [Suspect]
     Indication: DIABETES MELLITUS
     Route: 048
     Dates: start: 20080101
  2. ASPIRIN [Concomitant]
     Indication: ANTIPLATELET THERAPY
     Route: 065
  3. NICORANDIL [Concomitant]
     Indication: ANGINA PECTORIS
     Route: 065
  4. ATENOLOL AND CHLORTHALIDONE [Concomitant]
     Indication: BLOOD PRESSURE ABNORMAL
     Route: 065
  5. AMLODIPINE [Concomitant]
     Indication: BLOOD PRESSURE ABNORMAL
     Route: 065
  6. TELMISARTAN [Concomitant]
     Indication: BLOOD PRESSURE ABNORMAL
     Route: 065
  7. METFORMIN [Concomitant]
     Indication: DIABETES MELLITUS
     Route: 065
  8. ALLOPURINOL [Concomitant]
     Route: 065

REACTIONS (1)
  - GASTROINTESTINAL HAEMORRHAGE [None]
